FAERS Safety Report 6301058-5 (Version None)
Quarter: 2009Q3

REPORT INFORMATION
  Report Type: 
  Country: None (occurrence: None)
  Receive Date: 20090807
  Receipt Date: 20090720
  Transmission Date: 20100115
  Serious: Yes (Death)
  Sender: FDA-Public Use
  Company Number: FR-PFIZER INC-2009242452

PATIENT
  Age: 38 Year

DRUGS (7)
  1. DEPO-MEDROL [Suspect]
     Indication: B-CELL TYPE ACUTE LEUKAEMIA
     Dosage: 40 MG, 1X/DAY
     Route: 037
     Dates: start: 20090416, end: 20090416
  2. ARACYTINE [Suspect]
     Indication: B-CELL TYPE ACUTE LEUKAEMIA
     Dosage: 40 MG, 1X/DAY
     Route: 037
     Dates: start: 20090416, end: 20090416
  3. PREDNISONE TAB [Suspect]
     Indication: B-CELL TYPE ACUTE LEUKAEMIA
     Dosage: 120 MG, 1X/DAY
     Route: 048
     Dates: start: 20090408
  4. METHOTREXATE [Suspect]
     Indication: B-CELL TYPE ACUTE LEUKAEMIA
     Dosage: 15 MG, 1X/DAY
     Route: 037
     Dates: start: 20090416, end: 20090416
  5. CERUBIDIN [Suspect]
     Indication: B-CELL TYPE ACUTE LEUKAEMIA
     Dosage: 50 MG/M2, 1X/DAY
     Route: 042
     Dates: start: 20090416, end: 20090419
  6. VINCRISTINE [Suspect]
     Indication: B-CELL TYPE ACUTE LEUKAEMIA
     Dosage: 2 MG, 1X/DAY
     Route: 042
     Dates: start: 20090416, end: 20090416
  7. ENDOXAN [Suspect]
     Indication: B-CELL TYPE ACUTE LEUKAEMIA
     Dosage: 750 MG/M2, 1X/DAY
     Route: 042
     Dates: start: 20090416, end: 20090416

REACTIONS (1)
  - VASCULITIS CEREBRAL [None]
